FAERS Safety Report 10303783 (Version 2)
Quarter: 2014Q3

REPORT INFORMATION
  Report Type: Spontaneous
  Country: US (occurrence: US)
  Receive Date: 20140714
  Receipt Date: 20140714
  Transmission Date: 20150326
  Serious: No
  Sender: FDA-Public Use
  Company Number: US-GILEAD-2013-0083313

PATIENT
  Sex: Female

DRUGS (4)
  1. LETAIRIS [Suspect]
     Active Substance: AMBRISENTAN
     Dates: start: 20130831
  2. FUROSEMIDE. [Concomitant]
     Active Substance: FUROSEMIDE
  3. LISINOPRIL. [Suspect]
     Active Substance: LISINOPRIL
     Indication: PRODUCT USED FOR UNKNOWN INDICATION
     Route: 048
  4. LETAIRIS [Suspect]
     Active Substance: AMBRISENTAN
     Indication: PRODUCT USED FOR UNKNOWN INDICATION
     Dosage: 10 MG, QD
     Route: 048
     Dates: start: 20130830

REACTIONS (10)
  - Skin tightness [Unknown]
  - Fatigue [Unknown]
  - Asthenia [Unknown]
  - Arthralgia [Unknown]
  - Flushing [Unknown]
  - Fluid retention [Unknown]
  - Joint stiffness [Unknown]
  - Dizziness [Unknown]
  - Presyncope [Unknown]
  - Hypotension [Unknown]
